FAERS Safety Report 19376520 (Version 4)
Quarter: 2021Q3

REPORT INFORMATION
  Report Type: Report from Study
  Country: US (occurrence: US)
  Receive Date: 20210605
  Receipt Date: 20210902
  Transmission Date: 20211014
  Serious: Yes (Other)
  Sender: FDA-Public Use
  Company Number: NVSC2021US123739

PATIENT
  Age: 59 Year
  Sex: Female

DRUGS (3)
  1. GILENYA [Suspect]
     Active Substance: FINGOLIMOD HYDROCHLORIDE
     Indication: RELAPSING-REMITTING MULTIPLE SCLEROSIS
     Dosage: 0.5 MG, QD
     Route: 048
     Dates: start: 20210515
  2. GILENYA [Suspect]
     Active Substance: FINGOLIMOD HYDROCHLORIDE
     Dosage: 0.5 MG, QD
     Route: 048
  3. GILENYA [Suspect]
     Active Substance: FINGOLIMOD HYDROCHLORIDE
     Dosage: 0.25 MG, BID
     Route: 065
     Dates: start: 20210529

REACTIONS (5)
  - Inappropriate schedule of product administration [Unknown]
  - Blood glucose increased [Unknown]
  - Gait disturbance [Unknown]
  - Hypokinesia [Unknown]
  - Progressive relapsing multiple sclerosis [Unknown]

NARRATIVE: CASE EVENT DATE: 20210529
